FAERS Safety Report 13761577 (Version 1)
Quarter: 2017Q3

REPORT INFORMATION
  Report Type: Report from Study
  Country: US (occurrence: US)
  Receive Date: 20170717
  Receipt Date: 20170717
  Transmission Date: 20171127
  Serious: Yes (Other)
  Sender: FDA-Public Use
  Company Number: US-ROCHE-1963001

PATIENT
  Sex: Male

DRUGS (5)
  1. RITUXAN [Suspect]
     Active Substance: RITUXIMAB
     Indication: AUTOIMMUNE HAEMOLYTIC ANAEMIA
     Dosage: UNKNOWN DOSAGE UNIT ;ONGOING: NO
     Route: 065
     Dates: start: 20150629, end: 20150720
  2. RITUXAN [Suspect]
     Active Substance: RITUXIMAB
     Dosage: UNKNOWN DOSAGE UNIT ;ONGOING: NO
     Route: 065
     Dates: start: 20160405, end: 20160525
  3. PREDNISONE. [Concomitant]
     Active Substance: PREDNISONE
     Route: 065
     Dates: start: 2016, end: 2016
  4. PREDNISONE. [Concomitant]
     Active Substance: PREDNISONE
     Route: 065
     Dates: start: 2015, end: 2015
  5. PREDNISONE. [Concomitant]
     Active Substance: PREDNISONE
     Route: 065
     Dates: start: 20170711

REACTIONS (3)
  - Intentional product use issue [Unknown]
  - Off label use [Unknown]
  - Haemolysis [Unknown]
